FAERS Safety Report 4585440-2 (Version None)
Quarter: 2005Q1

REPORT INFORMATION
  Report Type: 
  Country: None (occurrence: None)
  Receive Date: 20050214
  Receipt Date: 20050131
  Transmission Date: 20050727
  Serious: Yes (Other)
  Sender: FDA-Public Use
  Company Number: 2004-121797-NL

PATIENT
  Age: 22 Year
  Sex: Female
  Weight: 86.4 kg

DRUGS (2)
  1. NUVARING [Suspect]
     Indication: CONTRACEPTION
     Dosage: VAGINAL
     Dates: start: 20040514, end: 20040827
  2. LEXAPRO [Concomitant]

REACTIONS (4)
  - CERVICAL DYSPLASIA [None]
  - HUMAN PAPILLOMA VIRUS TEST POSITIVE [None]
  - MIGRAINE [None]
  - SMEAR CERVIX ABNORMAL [None]
